FAERS Safety Report 7358450-X (Version None)
Quarter: 2011Q1

REPORT INFORMATION
  Report Type: 
  Country: None (occurrence: None)
  Receive Date: 20110314
  Receipt Date: 20110314
  Transmission Date: 20110831
  Serious: Yes (Life-Threatening)
  Sender: FDA-Public Use
  Company Number: None

PATIENT
  Age: 19 Year
  Sex: Male
  Weight: 57 kg

DRUGS (1)
  1. PREZISTA [Suspect]
     Indication: HIV INFECTION
     Dates: start: 20110101, end: 20110201

REACTIONS (3)
  - TOXIC EPIDERMAL NECROLYSIS [None]
  - DRUG DISPENSING ERROR [None]
  - STEVENS-JOHNSON SYNDROME [None]
